FAERS Safety Report 7611478-4 (Version None)
Quarter: 2011Q3

REPORT INFORMATION
  Report Type: 
  Country: None (occurrence: None)
  Receive Date: 20110708
  Receipt Date: 20110609
  Transmission Date: 20111222
  Serious: Yes (Other)
  Sender: FDA-Public Use
  Company Number: 2011028823

PATIENT
  Age: 66 Year
  Sex: Male
  Weight: 74.8435 kg

DRUGS (14)
  1. HIZENTRA [Suspect]
  2. HIZENTRA [Suspect]
     Indication: IMMUNODEFICIENCY COMMON VARIABLE
     Dosage: 15 G 1X/WEEK, INFUSED 75 ML VIA 4 SITES OVER 1 HR  17 MIN SUBCUTANEOUS
     Route: 058
     Dates: start: 20110523
  3. HIZENTRA [Suspect]
     Indication: IMMUNODEFICIENCY COMMON VARIABLE
     Dosage: 15 G 1X/WEEK, INFUSED 75 ML VIA 4 SITES OVER 1 HR  17 MIN SUBCUTANEOUS
     Route: 058
     Dates: start: 20110523
  4. HIZENTRA [Suspect]
     Indication: IMMUNODEFICIENCY COMMON VARIABLE
     Dosage: 15 G 1X/WEEK, INFUSED 75 ML VIA 4 SITES OVER 1 HR  17 MIN SUBCUTANEOUS
     Route: 058
     Dates: start: 20110523
  5. HIZENTRA [Suspect]
     Indication: IMMUNODEFICIENCY COMMON VARIABLE
     Dosage: 15 G 1X/WEEK, INFUSED 75 ML VIA 4 SITES OVER 1 HR  17 MIN SUBCUTANEOUS
     Route: 058
     Dates: start: 20110223
  6. HIZENTRA [Suspect]
  7. PRAVASTATIN [Concomitant]
  8. ASPIRIN [Concomitant]
  9. LISINOPRIL (LSINOPRIL) [Concomitant]
  10. ALBUTEROL [Concomitant]
  11. ATROVENT [Concomitant]
  12. ALLOPURINOL [Concomitant]
  13. ADVAIR DISKUS 100/50 [Concomitant]
  14. LEVOTHYROXINE SODIUM [Concomitant]

REACTIONS (1)
  - RESPIRATORY TRACT INFECTION [None]
